FAERS Safety Report 9079023 (Version 1)
Quarter: 2013Q1

REPORT INFORMATION
  Report Type: Report from Study
  Country: US (occurrence: US)
  Receive Date: 20130130
  Receipt Date: 20130130
  Transmission Date: 20140127
  Serious: No
  Sender: FDA-Public Use
  Company Number: US-ABBOTT-12P-163-0956749-00

PATIENT
  Age: 46 Year
  Sex: Female

DRUGS (5)
  1. HUMIRA 40 MG/0.8 ML PEN [Suspect]
     Indication: PSORIATIC ARTHROPATHY
     Dates: start: 20120523
  2. METHOTREXATE [Concomitant]
     Indication: PSORIATIC ARTHROPATHY
     Dosage: 6 PILLS WEEKLY
  3. SINGULAIR [Concomitant]
     Indication: ASTHMA
  4. SYMBICORT [Concomitant]
     Indication: ASTHMA
  5. FLONASE [Concomitant]
     Indication: ASTHMA

REACTIONS (2)
  - Polymenorrhoea [Recovered/Resolved]
  - Hormone level abnormal [Recovered/Resolved]
